FAERS Safety Report 5944593-1 (Version None)
Quarter: 2008Q4

REPORT INFORMATION
  Report Type: 
  Country: None (occurrence: None)
  Receive Date: 20081107
  Receipt Date: 20081104
  Transmission Date: 20090506
  Serious: Yes (Other)
  Sender: FDA-Public Use
  Company Number: AU-WYE-G02505008

PATIENT
  Sex: Male

DRUGS (1)
  1. REFACTO [Suspect]
     Indication: FACTOR VIII DEFICIENCY
     Dosage: UNKNOWN

REACTIONS (2)
  - DRUG INEFFECTIVE [None]
  - HAEMARTHROSIS [None]
